FAERS Safety Report 18377719 (Version 3)
Quarter: 2020Q4

REPORT INFORMATION
  Report Type: Report from Study
  Country: CA (occurrence: CA)
  Receive Date: 20201013
  Receipt Date: 20201207
  Transmission Date: 20210114
  Serious: Yes (Other)
  Sender: FDA-Public Use
  Company Number: CA-NALPROPION PHARMACEUTICALS INC.-2019-008439

PATIENT

DRUGS (17)
  1. CONTRAVE [Suspect]
     Active Substance: BUPROPION HYDROCHLORIDE\NALTREXONE HYDROCHLORIDE
     Dosage: STRENGTH: 90/8 MG, TWO TABLETS IN MORNING ONE TABLET IN THE EVENING
     Route: 048
     Dates: start: 20200203, end: 202002
  2. CONTRAVE [Suspect]
     Active Substance: BUPROPION HYDROCHLORIDE\NALTREXONE HYDROCHLORIDE
     Dosage: STRENGTH: 90/8 MG,STARTED 03/AUG/2020 (APPROX) ONE TABLET IN THE MORNING RESTARTED THERAPY
     Route: 048
     Dates: start: 202008, end: 202008
  3. DEXILANT [Concomitant]
     Active Substance: DEXLANSOPRAZOLE
     Indication: PRODUCT USED FOR UNKNOWN INDICATION
     Dosage: AS NEEDED (10 MG)
     Route: 048
  4. CEPHALEX                           /00145501/ [Concomitant]
     Active Substance: CEPHALEXIN
     Dosage: RESTARTED
     Route: 048
     Dates: start: 2020
  5. CONTRAVE [Suspect]
     Active Substance: BUPROPION HYDROCHLORIDE\NALTREXONE HYDROCHLORIDE
     Dosage: STRENGTH: 90/8 MG, ONE TABLET IN MORNING; ONE TABLET IN THE EVENING
     Route: 048
     Dates: start: 20190829, end: 20190904
  6. CONTRAVE [Suspect]
     Active Substance: BUPROPION HYDROCHLORIDE\NALTREXONE HYDROCHLORIDE
     Dosage: STRENGTH: 90/8 MG, TWO TABLETS IN MORNING; TWO TABLETS IN THE EVENING
     Route: 048
     Dates: start: 20190912, end: 20190930
  7. CONTRAVE [Suspect]
     Active Substance: BUPROPION HYDROCHLORIDE\NALTREXONE HYDROCHLORIDE
     Dosage: STRENGTH: 90/8 MG, ONE TABLET IN THE MORNING AND ONE TABLET IN THE EVENING
     Route: 048
     Dates: start: 20201001, end: 202011
  8. CEPHALEX                           /00145501/ [Concomitant]
     Active Substance: CEPHALEXIN
     Indication: INFECTION
     Dosage: 500 MG, 2 IN 1 D
     Route: 048
     Dates: start: 20200203, end: 20200216
  9. CONTRAVE [Suspect]
     Active Substance: BUPROPION HYDROCHLORIDE\NALTREXONE HYDROCHLORIDE
     Indication: WEIGHT CONTROL
     Dosage: STRENGTH: 90/8 MG, ONE TABLET IN MORNING
     Route: 048
     Dates: start: 20190822, end: 20190828
  10. CONTRAVE [Suspect]
     Active Substance: BUPROPION HYDROCHLORIDE\NALTREXONE HYDROCHLORIDE
     Dosage: STRENGTH: 90/8 MG, TWO TABLET IN MORNING; ONE TABLET IN THE EVENING (DOSE REDUCED)
     Route: 048
     Dates: start: 20191001, end: 20191004
  11. CONTRAVE [Suspect]
     Active Substance: BUPROPION HYDROCHLORIDE\NALTREXONE HYDROCHLORIDE
     Dosage: STARTED 10/AUG/2020 (APPROX) ONE TABLET IN THE MORNING AND ONE TABLET IN THE EVENING
     Route: 048
     Dates: start: 202008, end: 202008
  12. CONTRAVE [Suspect]
     Active Substance: BUPROPION HYDROCHLORIDE\NALTREXONE HYDROCHLORIDE
     Dosage: STRENGTH: 90/8 MG, ONE TABLET IN MORNING ONE TABLET IN THE EVENING (DOSE REDUCED)
     Route: 048
     Dates: start: 20191005, end: 20200202
  13. CONTRAVE [Suspect]
     Active Substance: BUPROPION HYDROCHLORIDE\NALTREXONE HYDROCHLORIDE
     Dosage: TWO TABLETS IN AM, ONE TABLET IN THE PM, STARTED 23/MAY/2020 (APPROX), END DATE:13/JUL/2020 (APPROX)
     Route: 048
     Dates: start: 202005, end: 2020
  14. CONTRAVE [Suspect]
     Active Substance: BUPROPION HYDROCHLORIDE\NALTREXONE HYDROCHLORIDE
     Dosage: STRENGTH: 90/8 MG, TWO TABLETS IN MORNING; ONE TABLET IN THE EVENING
     Route: 048
     Dates: start: 20190905, end: 20190911
  15. CONTRAVE [Suspect]
     Active Substance: BUPROPION HYDROCHLORIDE\NALTREXONE HYDROCHLORIDE
     Dosage: STRENGTH: 90/8 MG, ONE TABLET IN MORNING ONE TABLET IN THE EVENING, STARTED 16/MAR/2020 (APPROX)
     Route: 048
     Dates: start: 202003, end: 2020
  16. CONTRAVE [Suspect]
     Active Substance: BUPROPION HYDROCHLORIDE\NALTREXONE HYDROCHLORIDE
     Dosage: STARTED 17/AUG/2020 (APPROX) TWO TABLETS IN THE MORNING AND ONE TABLET IN THE EVENING
     Route: 048
     Dates: start: 202008, end: 202008
  17. CONTRAVE [Suspect]
     Active Substance: BUPROPION HYDROCHLORIDE\NALTREXONE HYDROCHLORIDE
     Dosage: STRENGTH: 90/8 MG, ONE TABLET IN THE MORNING
     Route: 048
     Dates: start: 20200819, end: 2020

REACTIONS (14)
  - Migraine [Recovered/Resolved]
  - Malaise [Recovered/Resolved]
  - Axillary mass [Recovering/Resolving]
  - Food aversion [Recovered/Resolved]
  - Thirst [Recovered/Resolved]
  - Patient dissatisfaction with treatment [Unknown]
  - Arthropathy [Not Recovered/Not Resolved]
  - Treatment noncompliance [Unknown]
  - Nausea [Recovering/Resolving]
  - Food craving [Recovering/Resolving]
  - Eating disorder [Unknown]
  - Bruxism [Unknown]
  - Ill-defined disorder [Unknown]
  - Sleep apnoea syndrome [Recovering/Resolving]

NARRATIVE: CASE EVENT DATE: 2019
